FAERS Safety Report 5494573-8 (Version None)
Quarter: 2007Q4

REPORT INFORMATION
  Report Type: 
  Country: None (occurrence: None)
  Receive Date: 20071024
  Receipt Date: 20071012
  Transmission Date: 20080405
  Serious: Yes (Other)
  Sender: FDA-Public Use
  Company Number: CA-ELI_LILLY_AND_COMPANY-CA200707005922

PATIENT
  Age: 86 Year
  Sex: Female

DRUGS (11)
  1. FORTEO [Suspect]
     Indication: OSTEOPOROSIS
     Dosage: 20 UG, DAILY (1/D)
     Route: 058
     Dates: start: 20070619, end: 20070723
  2. AMIODARONE [Concomitant]
     Indication: ATRIAL FIBRILLATION
     Dosage: 200 MG, DAILY (1/D)
     Dates: start: 20020101
  3. DIOVAN [Concomitant]
  4. ADALAT [Concomitant]
  5. ASPIRIN [Concomitant]
  6. CALCIUM [Concomitant]
  7. VITAMIN D [Concomitant]
  8. POTASSIUM CHLORIDE [Concomitant]
     Dates: start: 20070709
  9. VITAMIN A [Concomitant]
  10. ASCORBIC ACID [Concomitant]
  11. ACTONEL [Concomitant]
     Indication: OSTEOPOROSIS
     Dates: start: 20070723

REACTIONS (1)
  - ATRIAL FIBRILLATION [None]
